FAERS Safety Report 10701121 (Version 1)
Quarter: 2014Q4

REPORT INFORMATION
  Report Type: Spontaneous
  Country: US (occurrence: None)
  Receive Date: 20141224
  Receipt Date: 20141224
  Transmission Date: 20150529
  Serious: Yes (Other)
  Sender: FDA-Public Use
  Company Number: PHEH2014US021440

PATIENT
  Age: 41 Year
  Sex: Male

DRUGS (5)
  1. AFINITOR [Suspect]
     Active Substance: EVEROLIMUS
     Indication: PRODUCT USED FOR UNKNOWN INDICATION
     Dates: start: 20131127
  2. HYDROCHLOROTHIAZIDE (HYDROCHLOROTHIAZIDE) [Concomitant]
     Active Substance: HYDROCHLOROTHIAZIDE
  3. DEPAKOTE [Suspect]
     Active Substance: DIVALPROEX SODIUM
  4. LISINOPRIL (LISINOPRIL) [Suspect]
     Active Substance: LISINOPRIL
  5. TRILEPTAL [Concomitant]
     Active Substance: OXCARBAZEPINE

REACTIONS (4)
  - Dizziness [None]
  - Blood sodium decreased [None]
  - Hypertension [None]
  - Seizure [None]
